FAERS Safety Report 24397622 (Version 6)
Quarter: 2025Q1

REPORT INFORMATION
  Report Type: Spontaneous
  Country: US (occurrence: US)
  Receive Date: 20241004
  Receipt Date: 20250317
  Transmission Date: 20250409
  Serious: No
  Sender: EISAI
  Company Number: US-Eisai-EC-2024-175121

PATIENT
  Age: 66 Year
  Sex: Female
  Weight: 66.8 kg

DRUGS (2)
  1. LEQEMBI [Suspect]
     Active Substance: LECANEMAB-IRMB
     Indication: Dementia Alzheimer^s type
     Dates: start: 20240919, end: 2024
  2. LEQEMBI [Suspect]
     Active Substance: LECANEMAB-IRMB

REACTIONS (5)
  - Balance disorder [Recovered/Resolved]
  - Fatigue [Recovered/Resolved]
  - Aura [Recovered/Resolved]
  - Paraesthesia [Recovered/Resolved]
  - Amyloid related imaging abnormalities [Unknown]

NARRATIVE: CASE EVENT DATE: 20240919
